FAERS Safety Report 11680527 (Version 2)
Quarter: 2015Q4

REPORT INFORMATION
  Report Type: Spontaneous
  Country: IT (occurrence: IT)
  Receive Date: 20151029
  Receipt Date: 20151110
  Transmission Date: 20160304
  Serious: Yes (Hospitalization)
  Sender: FDA-Public Use
  Company Number: IT-ROCHE-1652132

PATIENT
  Age: 41 Year
  Sex: Male

DRUGS (5)
  1. PEPTAZOL (ITALY) [Concomitant]
  2. CEFTAZIDIME. [Concomitant]
     Active Substance: CEFTAZIDIME
  3. MABTHERA [Suspect]
     Active Substance: RITUXIMAB
     Indication: RELAPSING-REMITTING MULTIPLE SCLEROSIS
     Dosage: 1 VIAL 500 MG 50 ML
     Route: 065
     Dates: start: 20150615, end: 20150630
  4. LATTULAC [Concomitant]
  5. CIPROXIN [Concomitant]
     Active Substance: CIPROFLOXACIN

REACTIONS (5)
  - Erythema [Recovered/Resolved]
  - Genital candidiasis [Recovered/Resolved]
  - Off label use [Unknown]
  - Seborrhoeic dermatitis [Recovered/Resolved]
  - Urinary tract infection [Recovered/Resolved]

NARRATIVE: CASE EVENT DATE: 20150616
